FAERS Safety Report 5313582-2 (Version None)
Quarter: 2007Q2

REPORT INFORMATION
  Report Type: 
  Country: None (occurrence: None)
  Receive Date: 20070425
  Receipt Date: 20070413
  Transmission Date: 20071010
  Serious: Yes (Death, Hospitalization)
  Sender: FDA-Public Use
  Company Number: GXKR2007CH03090

PATIENT
  Age: 87 Year
  Sex: Male

DRUGS (7)
  1. PREDNISONE [Suspect]
     Indication: AUTOIMMUNE DISORDER
  2. PREDNISONE [Suspect]
  3. PREDNISONE [Suspect]
     Indication: AUTOIMMUNE DISORDER
     Dosage: 5 MG
  4. PREDNISONE [Suspect]
  5. CIPROFLOXACIN [Concomitant]
  6. CEFTRIAXONE [Concomitant]
  7. CLINDAMYCIN [Concomitant]

REACTIONS (14)
  - ASPERGILLOSIS [None]
  - BACTERIAL INFECTION [None]
  - C-REACTIVE PROTEIN INCREASED [None]
  - COLECTOMY [None]
  - COLOSTOMY [None]
  - EMPHYSEMA [None]
  - FLATULENCE [None]
  - LARGE INTESTINE PERFORATION [None]
  - LEUKOCYTOSIS [None]
  - NASOPHARYNGEAL DISORDER [None]
  - PNEUMONIA [None]
  - PYREXIA [None]
  - SEPSIS [None]
  - SINUSITIS [None]
